FAERS Safety Report 8990959 (Version 1)
Quarter: 2012Q4

REPORT INFORMATION
  Report Type: Spontaneous
  Country: DE (occurrence: None)
  Receive Date: 20121221
  Receipt Date: 20121221
  Transmission Date: 20130627
  Serious: Yes (Hospitalization)
  Sender: FDA-Public Use
  Company Number: DE-ACCORD-015571

PATIENT
  Age: 69 Year
  Sex: Male

DRUGS (5)
  1. TACROLIMUS [Suspect]
     Indication: IMMUNOSUPPRESSION
  2. MYCOPHENOLATE MOFETIL [Suspect]
     Indication: IMMUNOSUPPRESSION
  3. PANTOPRAZOLE(PANTOPRAZOLE) [Concomitant]
  4. METOPROLOL(METOPROLOL) [Concomitant]
  5. AMLODIPINE(AMLODIPINE) [Concomitant]

REACTIONS (1)
  - Henoch-Schonlein purpura [None]
